FAERS Safety Report 18936610 (Version 11)
Quarter: 2022Q2

REPORT INFORMATION
  Report Type: Other
  Country: ES (occurrence: ES)
  Receive Date: 20210225
  Receipt Date: 20220502
  Transmission Date: 20220720
  Serious: Yes (Hospitalization, Other)
  Sender: FDA-Public Use
  Company Number: ES-ROCHE-2769158

PATIENT
  Age: 13 Year
  Sex: Female

DRUGS (8)
  1. RISDIPLAM [Suspect]
     Active Substance: RISDIPLAM
     Indication: Spinal muscular atrophy
     Dosage: 6.6 ML / DAY
     Route: 048
     Dates: start: 20201203, end: 20210118
  2. RISDIPLAM [Suspect]
     Active Substance: RISDIPLAM
     Route: 048
     Dates: start: 20210202, end: 20210218
  3. SPINRAZA [Suspect]
     Active Substance: NUSINERSEN
     Indication: Spinal muscular atrophy
     Dosage: 24 MONTHS OF TREATMENT
     Route: 065
     Dates: start: 201805, end: 202005
  4. SPINRAZA [Suspect]
     Active Substance: NUSINERSEN
     Dosage: RESTARTED 3 AND A HALF MONTHS AFTER WITHDRAWAL OF RISDIPLAM. CURRENTLY 2 DOSES.
     Route: 065
  5. ALBUTEROL [Concomitant]
     Active Substance: ALBUTEROL
     Indication: Spinal muscular atrophy
     Route: 048
  6. CEFUROXIME [Concomitant]
     Active Substance: CEFUROXIME
  7. CLOXACILLIN [Concomitant]
     Active Substance: CLOXACILLIN
     Route: 042
  8. RIFAMPIN [Concomitant]
     Active Substance: RIFAMPIN
     Route: 048

REACTIONS (4)
  - Cutaneous vasculitis [Recovered/Resolved]
  - Upper respiratory tract infection [Unknown]
  - Staphylococcal osteomyelitis [Unknown]
  - Arthritis bacterial [Unknown]

NARRATIVE: CASE EVENT DATE: 20200701
